FAERS Safety Report 8985992 (Version 1)
Quarter: 2012Q4

REPORT INFORMATION
  Report Type: Report from Study
  Country: GB (occurrence: GB)
  Receive Date: 20121226
  Receipt Date: 20121226
  Transmission Date: 20130627
  Serious: Yes (Other)
  Sender: FDA-Public Use
  Company Number: GB-VERTEX PHARMACEUTICALS INC.-2012-025845

PATIENT
  Age: 29 Year
  Sex: Male

DRUGS (3)
  1. VX-950 (TELAPREVIR) [Suspect]
     Indication: HEPATITIS C
     Dosage: UNK
     Route: 048
     Dates: start: 20121119
  2. RIBAVIRIN [Concomitant]
     Indication: HEPATITIS C
     Dosage: Dosage Form: Tablets
     Route: 048
     Dates: start: 20121119
  3. PEG-INTERFERON [Concomitant]
     Indication: HEPATITIS C
     Dosage: Dosage Form: Injection
     Route: 058
     Dates: start: 20121119

REACTIONS (4)
  - Weight decreased [Not Recovered/Not Resolved]
  - Constipation [Not Recovered/Not Resolved]
  - Insomnia [Not Recovered/Not Resolved]
  - Rash pruritic [Not Recovered/Not Resolved]
